FAERS Safety Report 5972023-2 (Version None)
Quarter: 2008Q4

REPORT INFORMATION
  Report Type: 
  Country: None (occurrence: None)
  Receive Date: 20081125
  Receipt Date: 20081110
  Transmission Date: 20090506
  Serious: Yes (Hospitalization, Other)
  Sender: FDA-Public Use
  Company Number: DSJ-2008-06770

PATIENT
  Age: 71 Year
  Sex: Female
  Weight: 57.3 kg

DRUGS (3)
  1. OLMESARTAN MEDOXOMIL [Suspect]
     Indication: HYPERTENSION
     Dosage: 5 MG (5 MG, 1 IN 1 D), PER ORAL
     Route: 048
     Dates: start: 20080218, end: 20080601
  2. ATELEC (CLINIDIPINE) (TABLET) (CLINDIPINE) [Concomitant]
  3. BAYSLOWTH (VOGLIBOSE) (TABLET) (VOGLIBOSE) [Concomitant]

REACTIONS (3)
  - CONTUSION [None]
  - PLATELET COUNT DECREASED [None]
  - PURPURA [None]
